FAERS Safety Report 22076513 (Version 1)
Quarter: 2023Q1

REPORT INFORMATION
  Report Type: Spontaneous
  Country: US (occurrence: US)
  Receive Date: 20230309
  Receipt Date: 20230309
  Transmission Date: 20230418
  Serious: No
  Sender: FDA-Public Use
  Company Number: US-STERISCIENCE B.V.-2022-ST-000277

PATIENT
  Age: 32 Year
  Sex: Female

DRUGS (13)
  1. LABETALOL [Suspect]
     Active Substance: LABETALOL\LABETALOL HYDROCHLORIDE
     Indication: Hypertension
     Dosage: 10 MILLIGRAM
     Route: 042
  2. BUPIVACAINE [Suspect]
     Active Substance: BUPIVACAINE
     Indication: Analgesic therapy
     Dosage: ADMINISTERED AT THE RATE OF 6 ML/H
     Route: 008
  3. MISOPROSTOL [Suspect]
     Active Substance: MISOPROSTOL
     Indication: Labour induction
     Dosage: 25 MICROGRAM
     Route: 060
  4. OXYTOCIN [Suspect]
     Active Substance: OXYTOCIN
     Indication: Labour induction
     Dosage: INFUSION AT A STARTING DOSE OF 0.24 U/H AND RANGED FROM 0.04 U/H TO 1.2 U/H
     Route: 065
  5. OXYTOCIN [Suspect]
     Active Substance: OXYTOCIN
     Dosage: 20 INTERNATIONAL UNIT
     Route: 042
  6. MAGNESIUM SULFATE [Suspect]
     Active Substance: MAGNESIUM SULFATE
     Indication: Hypertension
     Dosage: 6 GRAM
     Route: 040
  7. MAGNESIUM SULFATE [Suspect]
     Active Substance: MAGNESIUM SULFATE
     Dosage: IV INFUSION THAT RANGED BETWEEN 1.52.0 G/H
     Route: 042
  8. LACTATED RINGERS SOLUTION [Suspect]
     Active Substance: CALCIUM CHLORIDE\POTASSIUM CHLORIDE\SODIUM CHLORIDE\SODIUM LACTATE
     Indication: Product used for unknown indication
     Dosage: THREE FLUID BOLUSES OF 500ML EACH OF RINGER^S-LACTATE SOLUTION OVER THE FOLLOWING 4 HOURS
     Route: 065
  9. FENTANYL [Suspect]
     Active Substance: FENTANYL
     Indication: Analgesic therapy
     Dosage: ADMINISTERED AT THE RATE OF 6 ML/H
     Route: 008
  10. FUROSEMIDE [Suspect]
     Active Substance: FUROSEMIDE
     Indication: Polyuria
     Dosage: 10 MILLIGRAM
     Route: 042
  11. FUROSEMIDE [Suspect]
     Active Substance: FUROSEMIDE
     Dosage: UNK
     Route: 065
  12. LIDOCAINE [Suspect]
     Active Substance: LIDOCAINE
     Indication: Product used for unknown indication
     Dosage: 1ML FOR A FINAL VOLUME OF 20ML
     Route: 008
  13. SODIUM BICARBONATE [Suspect]
     Active Substance: SODIUM BICARBONATE
     Indication: Product used for unknown indication
     Dosage: 1ML FOR A FINAL VOLUME OF 20ML
     Route: 008

REACTIONS (1)
  - Maternal exposure during pregnancy [Unknown]
